FAERS Safety Report 7542870-4 (Version None)
Quarter: 2011Q2

REPORT INFORMATION
  Report Type: 
  Country: None (occurrence: None)
  Receive Date: 20110524
  Receipt Date: 20110406
  Transmission Date: 20111010
  Serious: No
  Sender: FDA-Public Use
  Company Number: 024753

PATIENT
  Sex: Female
  Weight: 43.5453 kg

DRUGS (14)
  1. PREDNISONE [Concomitant]
  2. NORVASC [Concomitant]
  3. PENTASA [Concomitant]
  4. TOPAMAX [Concomitant]
  5. ENTOCORT EC [Concomitant]
  6. PAROXETINE HCL [Concomitant]
  7. FERROUS SULFATE TAB [Concomitant]
  8. CENTRUM SILVER [Concomitant]
  9. CIMZIA [Suspect]
     Indication: CROHN'S DISEASE
     Dosage: (400 MG 1X/4 WEEKS, LOT NO : 57556 PREVIOUS SHOT OF APPROXIMATELY 24/JAN/2011 SUBCUTANEOUS)
     Route: 058
     Dates: start: 20101002
  10. PREVACID [Concomitant]
  11. TIMOLOL MALEATE [Concomitant]
  12. CALCIUM CARBONATE [Concomitant]
  13. TRICOR [Concomitant]
  14. C-VITAMIN [Concomitant]

REACTIONS (4)
  - CROHN'S DISEASE [None]
  - MALAISE [None]
  - ABDOMINAL PAIN [None]
  - FREQUENT BOWEL MOVEMENTS [None]
